FAERS Safety Report 8660890 (Version 2)
Quarter: 2013Q1

REPORT INFORMATION
  Report Type: Spontaneous
  Country: US (occurrence: US)
  Receive Date: 20120711
  Receipt Date: 20130308
  Transmission Date: 20140127
  Serious: Yes (Other)
  Sender: FDA-Public Use
  Company Number: PHHY2012US058498

PATIENT
  Age: 87 Year
  Sex: Male

DRUGS (1)
  1. PREDNISONE [Suspect]
     Dosage: 60 MG, DAILY
     Route: 048

REACTIONS (2)
  - Visual acuity reduced [Not Recovered/Not Resolved]
  - Varicella virus test positive [Not Recovered/Not Resolved]
